FAERS Safety Report 24960938 (Version 1)
Quarter: 2025Q1

REPORT INFORMATION
  Report Type: Spontaneous
  Country: FR (occurrence: FR)
  Receive Date: 20250212
  Receipt Date: 20250212
  Transmission Date: 20250408
  Serious: Yes (Death, Other)
  Sender: AMGEN
  Company Number: FR-AMGEN-FRASP2025026830

PATIENT
  Sex: Male

DRUGS (2)
  1. BEVACIZUMAB [Suspect]
     Active Substance: BEVACIZUMAB
     Indication: Mixed adenoneuroendocrine carcinoma
     Route: 065
     Dates: start: 2023
  2. ATEZOLIZUMAB [Concomitant]
     Active Substance: ATEZOLIZUMAB
     Indication: Mixed adenoneuroendocrine carcinoma
     Route: 065
     Dates: start: 2023

REACTIONS (3)
  - Hypoglycaemia [Fatal]
  - Mixed adenoneuroendocrine carcinoma [Unknown]
  - Off label use [Unknown]

NARRATIVE: CASE EVENT DATE: 20230101
